FAERS Safety Report 13001447 (Version 4)
Quarter: 2017Q1

REPORT INFORMATION
  Report Type: Spontaneous
  Country: IE (occurrence: IE)
  Receive Date: 20161206
  Receipt Date: 20170315
  Transmission Date: 20170428
  Serious: Yes (Disabling, Other)
  Sender: FDA-Public Use
  Company Number: PHFR2016IE009535

PATIENT
  Age: 58 Year
  Sex: Male
  Weight: 74 kg

DRUGS (2)
  1. MEKINIST [Suspect]
     Active Substance: TRAMETINIB DIMETHYL SULFOXIDE
     Indication: METASTATIC MALIGNANT MELANOMA
     Dosage: 2 MG, QD
     Route: 048
     Dates: start: 201305, end: 20161010
  2. DABRAFENIB [Suspect]
     Active Substance: DABRAFENIB
     Indication: METASTATIC MALIGNANT MELANOMA
     Dosage: 300 MG, QD
     Route: 048
     Dates: start: 20120305, end: 20161010

REACTIONS (9)
  - Muscular weakness [Recovering/Resolving]
  - Mononeuropathy multiplex [Recovering/Resolving]
  - General physical health deterioration [Unknown]
  - Malaise [Not Recovered/Not Resolved]
  - Pain in extremity [Recovered/Resolved]
  - Weight decreased [Recovering/Resolving]
  - Neuropathy peripheral [Unknown]
  - Hyperaesthesia [Recovering/Resolving]
  - Sexual dysfunction [Unknown]

NARRATIVE: CASE EVENT DATE: 201606
